FAERS Safety Report 13240240 (Version 1)
Quarter: 2017Q1

REPORT INFORMATION
  Report Type: Spontaneous
  Country: US (occurrence: US)
  Receive Date: 20170216
  Receipt Date: 20170216
  Transmission Date: 20170428
  Serious: No
  Sender: FDA-Public Use
  Company Number: US-RELYPSA-RLY2016003924

PATIENT
  Sex: Female

DRUGS (3)
  1. VELTASSA [Suspect]
     Active Substance: PATIROMER
     Dosage: 8.4 G, UNKNOWN
     Route: 048
     Dates: start: 201605, end: 2016
  2. VELTASSA [Suspect]
     Active Substance: PATIROMER
     Indication: HYPERKALAEMIA
     Dosage: 16.8 G, QD
     Route: 048
     Dates: start: 2016, end: 2016
  3. VELTASSA [Suspect]
     Active Substance: PATIROMER
     Dosage: 16.8 G , 1/2 PACKET DAILY
     Route: 048
     Dates: start: 2016

REACTIONS (4)
  - Blood potassium increased [Unknown]
  - Incorrect dosage administered [Unknown]
  - Drug administration error [Unknown]
  - Nausea [Unknown]

NARRATIVE: CASE EVENT DATE: 2016
